FAERS Safety Report 6781625-5 (Version None)
Quarter: 2010Q2

REPORT INFORMATION
  Report Type: 
  Country: None (occurrence: None)
  Receive Date: 20100621
  Receipt Date: 20100607
  Transmission Date: 20101027
  Serious: Yes (Hospitalization)
  Sender: FDA-Public Use
  Company Number: JP-BAYER-201012700BYL

PATIENT
  Sex: Female

DRUGS (1)
  1. ADALAT CC [Suspect]
     Indication: DRUG USE FOR UNKNOWN INDICATION
     Dosage: TOTAL DAILY DOSE: 840 MG  UNIT DOSE: 20 MG
     Route: 048

REACTIONS (2)
  - HYPOTENSION [None]
  - URINE OUTPUT DECREASED [None]
